FAERS Safety Report 18416231 (Version 2)
Quarter: 2020Q4

REPORT INFORMATION
  Report Type: Spontaneous
  Country: US (occurrence: US)
  Receive Date: 20201022
  Receipt Date: 20201103
  Transmission Date: 20210114
  Serious: No
  Sender: FDA-Public Use
  Company Number: US-009507513-2010USA004491

PATIENT
  Age: 41 Year
  Sex: Female

DRUGS (3)
  1. FOLLISTIM AQ [Suspect]
     Active Substance: FOLLITROPIN
     Indication: ASSISTED FERTILISATION
     Dosage: 150 INTERNATIONAL UNIT, DAILY
     Route: 058
  2. FOLLISTIM AQ [Suspect]
     Active Substance: FOLLITROPIN
     Dosage: UNK
  3. FOLLISTIM AQ [Suspect]
     Active Substance: FOLLITROPIN
     Indication: ASSISTED FERTILISATION
     Dosage: 150 IU, TWICE DAILY
     Route: 058
     Dates: start: 20201006

REACTIONS (4)
  - Poor quality device used [Unknown]
  - Drug ineffective [Unknown]
  - Poor quality device used [Unknown]
  - Product packaging quantity issue [Unknown]

NARRATIVE: CASE EVENT DATE: 20201011
